FAERS Safety Report 4271264-2 (Version None)
Quarter: 2004Q1

REPORT INFORMATION
  Report Type: 
  Country: None (occurrence: None)
  Receive Date: 20040114
  Receipt Date: 20040114
  Transmission Date: 20041129
  Serious: Yes (Life-Threatening, Hospitalization)
  Sender: FDA-Public Use
  Company Number: None

PATIENT
  Age: 76 Year
  Sex: Female
  Weight: 72.5755 kg

DRUGS (2)
  1. VIOXX [Suspect]
     Indication: ARTHRALGIA
     Dosage: 1 DAILY
     Dates: start: 20020101, end: 20021101
  2. VIOXX [Suspect]
     Indication: ARTHRITIS
     Dosage: 1 DAILY
     Dates: start: 20020101, end: 20021101

REACTIONS (1)
  - RECTAL HAEMORRHAGE [None]
